FAERS Safety Report 21899548 (Version 1)
Quarter: 2023Q1

REPORT INFORMATION
  Report Type: Spontaneous
  Country: US (occurrence: None)
  Receive Date: 20230123
  Receipt Date: 20230123
  Transmission Date: 20230418
  Serious: Yes (Hospitalization)
  Sender: FDA-Public Use
  Company Number: None

PATIENT
  Age: 45 Year
  Sex: Male
  Weight: 111.6 kg

DRUGS (6)
  1. MAXIPIME [Suspect]
     Active Substance: CEFEPIME HYDROCHLORIDE
     Indication: Diverticulitis
     Dosage: FREQUENCY : 3 TIMES A DAY;?
     Route: 042
     Dates: start: 20221103, end: 20221104
  2. Allopurinol 100 mg PO BID [Concomitant]
     Dates: start: 20221103, end: 20230112
  3. Lisinopril 40 mg PO QDay [Concomitant]
     Dates: start: 20221103, end: 20230112
  4. Vicodin 5/325 PO Q4H PRN [Concomitant]
     Dates: start: 20221103, end: 20230112
  5. Oxycodone 5 mg PO Q4H PRN [Concomitant]
     Dates: start: 20221103, end: 20230112
  6. Zofran 4 mg PO BID [Concomitant]
     Dates: start: 20221103, end: 20230112

REACTIONS (2)
  - Diarrhoea [None]
  - Nausea [None]

NARRATIVE: CASE EVENT DATE: 20221104
